FAERS Safety Report 5458136-2 (Version None)
Quarter: 2007Q3

REPORT INFORMATION
  Report Type: 
  Country: None (occurrence: None)
  Receive Date: 20070917
  Receipt Date: 20070907
  Transmission Date: 20080115
  Serious: Yes (Life-Threatening)
  Sender: FDA-Public Use
  Company Number: 2007SP018095

PATIENT
  Age: 67 Year
  Sex: Male
  Weight: 75 kg

DRUGS (4)
  1. TEMODAL [Suspect]
     Indication: GLIOSARCOMA
     Dosage: 75 MG/M2;QD;PO : 200 MG/M2;QD;PO
     Route: 048
     Dates: start: 20070117, end: 20070305
  2. TEMODAL [Suspect]
     Indication: GLIOSARCOMA
     Dosage: 75 MG/M2;QD;PO : 200 MG/M2;QD;PO
     Route: 048
     Dates: end: 20070731
  3. PREDNISOLONE [Concomitant]
  4. RHEUMATREX [Concomitant]

REACTIONS (11)
  - ARTERIAL STENOSIS LIMB [None]
  - CARDIAC ARREST [None]
  - CELLULITIS [None]
  - DISSEMINATED INTRAVASCULAR COAGULATION [None]
  - EPIDERMAL NECROSIS [None]
  - HAEMODIALYSIS [None]
  - PALPITATIONS [None]
  - RENAL FAILURE [None]
  - SEPTIC SHOCK [None]
  - SUPRAVENTRICULAR TACHYCARDIA [None]
  - VENTRICULAR FIBRILLATION [None]
